FAERS Safety Report 8422599 (Version 14)
Quarter: 2013Q4

REPORT INFORMATION
  Report Type: Spontaneous
  Country: US (occurrence: None)
  Receive Date: 20120210
  Receipt Date: 20131104
  Transmission Date: 20140711
  Serious: Yes (Hospitalization, Other)
  Sender: FDA-Public Use
  Company Number: ADR-2011-11747

PATIENT
  Sex: Male

DRUGS (6)
  1. BACLOFEN [Suspect]
     Indication: PAIN
  2. FENTANYL [Suspect]
  3. CLONIDINE [Suspect]
  4. MORPHINE [Suspect]
     Dosage: HIGHEST
  5. DILAUDID [Suspect]
     Route: 048
  6. FENTANYL [Suspect]

REACTIONS (53)
  - Inadequate analgesia [None]
  - Sciatica [None]
  - Breakthrough pain [None]
  - Oedema peripheral [None]
  - Pleurisy [None]
  - Restless legs syndrome [None]
  - Drug withdrawal syndrome [None]
  - Neck pain [None]
  - Back pain [None]
  - Muscle spasms [None]
  - Hyperhidrosis [None]
  - Joint injury [None]
  - Rotator cuff syndrome [None]
  - Meningitis [None]
  - Pulmonary mass [None]
  - Spinal pain [None]
  - Arthralgia [None]
  - Implant site infection [None]
  - Pruritus [None]
  - Implant site discolouration [None]
  - Medical device complication [None]
  - Swelling [None]
  - Blood pressure increased [None]
  - Post procedural infection [None]
  - Exercise tolerance decreased [None]
  - Movement disorder [None]
  - Headache [None]
  - Drug dependence [None]
  - Rhinorrhoea [None]
  - Device leakage [None]
  - Device failure [None]
  - Drug ineffective [None]
  - Intervertebral disc degeneration [None]
  - Mass [None]
  - Anxiety [None]
  - Device expulsion [None]
  - Implant site pruritus [None]
  - Implant site swelling [None]
  - Nervousness [None]
  - Malaise [None]
  - Streptococcal infection [None]
  - Tooth infection [None]
  - Somnolence [None]
  - Hypertension [None]
  - Diarrhoea [None]
  - Faecal incontinence [None]
  - Malaise [None]
  - Withdrawal syndrome [None]
  - Pain [None]
  - Feeling abnormal [None]
  - Exercise lack of [None]
  - Musculoskeletal stiffness [None]
  - Self-medication [None]
